FAERS Safety Report 6213778-1 (Version None)
Quarter: 2009Q2

REPORT INFORMATION
  Report Type: 
  Country: None (occurrence: None)
  Receive Date: 20090603
  Receipt Date: 20090528
  Transmission Date: 20091009
  Serious: Yes (Hospitalization, Other)
  Sender: FDA-Public Use
  Company Number: US-AMGEN-QUU323188

PATIENT
  Sex: Female

DRUGS (6)
  1. ENBREL [Suspect]
     Indication: PSORIATIC ARTHROPATHY
     Route: 058
     Dates: start: 20011001
  2. VYTORIN [Concomitant]
     Route: 048
  3. ALLEGRA [Concomitant]
  4. LISINOPRIL [Concomitant]
  5. MULTI-VITAMINS [Concomitant]
  6. JANUVIA [Concomitant]

REACTIONS (7)
  - ADRENAL MASS [None]
  - C-REACTIVE PROTEIN INCREASED [None]
  - DIVERTICULUM [None]
  - HYPERGLYCAEMIA [None]
  - HYPERLIPIDAEMIA [None]
  - PSORIASIS [None]
  - URINARY TRACT INFECTION [None]
